FAERS Safety Report 16793660 (Version 4)
Quarter: 2019Q4

REPORT INFORMATION
  Report Type: Spontaneous
  Country: US (occurrence: US)
  Receive Date: 20190911
  Receipt Date: 20191206
  Transmission Date: 20200122
  Serious: No
  Sender: FDA-Public Use
  Company Number: US-JNJFOC-20190906371

PATIENT
  Age: 34 Year
  Sex: Female

DRUGS (3)
  1. TYLENOL [Suspect]
     Active Substance: ACETAMINOPHEN
     Indication: PAIN
  2. TYLENOL [Suspect]
     Active Substance: ACETAMINOPHEN
     Indication: HEADACHE
     Dosage: ONE OR TWO TABLETS
     Route: 048
     Dates: start: 201908
  3. NATURE^S BOUNTY VITAMIN C PLUS ECHINACEA [Concomitant]
     Indication: PRENATAL CARE
     Route: 065
     Dates: start: 201906

REACTIONS (3)
  - Incorrect dose administered [Unknown]
  - Exposure during pregnancy [Unknown]
  - Product contamination physical [Unknown]

NARRATIVE: CASE EVENT DATE: 201908
